FAERS Safety Report 6498060-X (Version None)
Quarter: 2009Q4

REPORT INFORMATION
  Report Type: 
  Country: None (occurrence: None)
  Receive Date: 20091215
  Receipt Date: 20091211
  Transmission Date: 20100525
  Serious: Yes (Death, Other)
  Sender: FDA-Public Use
  Company Number: PHHY2009JP24003

PATIENT
  Age: 61 Year
  Sex: Female

DRUGS (2)
  1. NEORAL [Suspect]
     Indication: INTERSTITIAL LUNG DISEASE
     Dosage: 2 TO 3 MG/KG/DAY
     Route: 048
     Dates: start: 20041001, end: 20081031
  2. PREDNISOLONE [Concomitant]
     Indication: INTERSTITIAL LUNG DISEASE
     Dosage: 10 MG/DAY
     Dates: start: 20041001, end: 20081031

REACTIONS (3)
  - LUNG SQUAMOUS CELL CARCINOMA STAGE I [None]
  - NON-SMALL CELL LUNG CANCER [None]
  - PNEUMOTHORAX [None]
